FAERS Safety Report 5939502-5 (Version None)
Quarter: 2008Q4

REPORT INFORMATION
  Report Type: 
  Country: None (occurrence: None)
  Receive Date: 20081030
  Receipt Date: 20081016
  Transmission Date: 20090506
  Serious: No
  Sender: FDA-Public Use
  Company Number: SPI200800496

PATIENT
  Age: 41 Year
  Sex: Female

DRUGS (3)
  1. AMITIZA [Suspect]
     Indication: CONSTIPATION
     Dosage: 24 MCG,BID,ORAL
     Route: 048
     Dates: start: 20080217, end: 20081001
  2. MULTIVITAMIN /00831701/ (VITAMINS NOS) [Concomitant]
  3. STOOL SOFTENER (DOCUSATE SODIUM) [Concomitant]

REACTIONS (3)
  - CHEST PAIN [None]
  - HEART RATE INCREASED [None]
  - PALPITATIONS [None]
